FAERS Safety Report 17645762 (Version 6)
Quarter: 2020Q2

REPORT INFORMATION
  Report Type: Spontaneous
  Country: US (occurrence: US)
  Receive Date: 20200408
  Receipt Date: 20200622
  Transmission Date: 20200713
  Serious: Yes (Other)
  Sender: FDA-Public Use
  Company Number: US-KARYOPHARM-2020KPT000337

PATIENT

DRUGS (4)
  1. XPOVIO [Suspect]
     Active Substance: SELINEXOR
     Dosage: 40 MG, WEEKLY
     Route: 048
     Dates: start: 202006
  2. XPOVIO [Suspect]
     Active Substance: SELINEXOR
     Dosage: 60 MG, WEEKLY
     Route: 048
     Dates: end: 202005
  3. XPOVIO [Suspect]
     Active Substance: SELINEXOR
     Indication: PLASMA CELL MYELOMA
     Dosage: 60 MG, WEEKLY
     Route: 048
     Dates: start: 20200327, end: 20200424
  4. ZOFRAN [Concomitant]
     Active Substance: ONDANSETRON HYDROCHLORIDE
     Indication: NAUSEA
     Dosage: UNK

REACTIONS (10)
  - Lower limb fracture [Not Recovered/Not Resolved]
  - Mood swings [Not Recovered/Not Resolved]
  - Back pain [Not Recovered/Not Resolved]
  - Anaemia [Unknown]
  - Hypoaesthesia [Unknown]
  - Bone neoplasm [Not Recovered/Not Resolved]
  - Thrombocytopenia [Unknown]
  - Neutropenia [Unknown]
  - Leukopenia [Unknown]
  - Hyponatraemia [Unknown]

NARRATIVE: CASE EVENT DATE: 2020
